FAERS Safety Report 4362720-7 (Version None)
Quarter: 2004Q2

REPORT INFORMATION
  Report Type: 
  Country: None (occurrence: None)
  Receive Date: 20040517
  Receipt Date: 20040405
  Transmission Date: 20050107
  Serious: No
  Sender: FDA-Public Use
  Company Number: S04-USA-02027-01

PATIENT
  Age: 86 Year
  Sex: Female

DRUGS (3)
  1. NAMENDA [Suspect]
     Indication: DEMENTIA ALZHEIMER'S TYPE
     Dates: start: 20040320
  2. ARICEPT [Concomitant]
  3. BLOOD PRESSURE MEDICATION [Concomitant]

REACTIONS (2)
  - ECZEMA INFANTILE [None]
  - SKIN PAPILLOMA [None]
